FAERS Safety Report 17047353 (Version 1)
Quarter: 2019Q4

REPORT INFORMATION
  Report Type: Spontaneous
  Country: US (occurrence: US)
  Receive Date: 20191119
  Receipt Date: 20191119
  Transmission Date: 20200122
  Serious: No
  Sender: FDA-Public Use
  Company Number: US-MYLANLABS-2019M1105845

PATIENT
  Age: 22 Year
  Sex: Female
  Weight: 45 kg

DRUGS (1)
  1. MEDROXYPROGESTERONE ACETATE INJECTABLE SUSPENSION USP [Suspect]
     Active Substance: MEDROXYPROGESTERONE ACETATE
     Indication: CONTRACEPTION
     Dosage: 150 MILLIGRAM, Q3MONTHS
     Route: 030
     Dates: start: 2018

REACTIONS (2)
  - Needle issue [Not Recovered/Not Resolved]
  - Incorrect dose administered [Not Recovered/Not Resolved]

NARRATIVE: CASE EVENT DATE: 20191104
